FAERS Safety Report 17875081 (Version 2)
Quarter: 2020Q3

REPORT INFORMATION
  Report Type: Spontaneous
  Country: US (occurrence: US)
  Receive Date: 20200609
  Receipt Date: 20200820
  Transmission Date: 20201103
  Serious: No
  Sender: FDA-Public Use
  Company Number: NVSC2020US158046

PATIENT
  Sex: Female

DRUGS (6)
  1. TAFINLAR [Suspect]
     Active Substance: DABRAFENIB MESYLATE
     Indication: MALIGNANT MELANOMA
  2. MEKINIST [Suspect]
     Active Substance: TRAMETINIB DIMETHYL SULFOXIDE
     Indication: MALIGNANT MELANOMA
  3. TAFINLAR [Suspect]
     Active Substance: DABRAFENIB MESYLATE
     Indication: KAPOSI^S SARCOMA
     Dosage: 150 MG, Q12H
     Route: 048
     Dates: start: 20200317
  4. MEKINIST [Suspect]
     Active Substance: TRAMETINIB DIMETHYL SULFOXIDE
     Indication: KAPOSI^S SARCOMA
     Dosage: 2 MG, QD
     Route: 048
     Dates: start: 20200317
  5. TAFINLAR [Suspect]
     Active Substance: DABRAFENIB MESYLATE
     Indication: MALIGNANT MELANOMA
  6. MEKINIST [Suspect]
     Active Substance: TRAMETINIB DIMETHYL SULFOXIDE
     Indication: MALIGNANT MELANOMA

REACTIONS (5)
  - Pyrexia [Unknown]
  - Pain [Unknown]
  - Rash [Unknown]
  - Visual impairment [Unknown]
  - Chills [Unknown]
